FAERS Safety Report 18514055 (Version 1)
Quarter: 2020Q4

REPORT INFORMATION
  Report Type: Spontaneous
  Country: US (occurrence: US)
  Receive Date: 20201118
  Receipt Date: 20201118
  Transmission Date: 20210114
  Serious: No
  Sender: FDA-Public Use
  Company Number: US-ALLERGAN-1950386US

PATIENT
  Age: 67 Year
  Sex: Female

DRUGS (1)
  1. ALPHAGAN P [Suspect]
     Active Substance: BRIMONIDINE TARTRATE
     Indication: GLAUCOMA
     Dosage: 1 GTT, QD
     Route: 047
     Dates: start: 201911

REACTIONS (2)
  - Eye swelling [Recovered/Resolved]
  - Intraocular pressure test [Recovered/Resolved]

NARRATIVE: CASE EVENT DATE: 20191123
